FAERS Safety Report 8917642 (Version 5)
Quarter: 2013Q1

REPORT INFORMATION
  Report Type: Spontaneous
  Country: US (occurrence: US)
  Receive Date: 20121119
  Receipt Date: 20130308
  Transmission Date: 20140127
  Serious: No
  Sender: FDA-Public Use
  Company Number: US-009507513-1210USA005355

PATIENT
  Age: 4 Year
  Sex: Male
  Weight: 19.5 kg

DRUGS (4)
  1. CLARITIN ORAL SOLUTION [Suspect]
     Indication: SINUS CONGESTION
     Dosage: 3.75 MG, QD
     Route: 048
     Dates: start: 20120903, end: 20120911
  2. CLARITIN ORAL SOLUTION [Suspect]
     Indication: MEDICAL OBSERVATION
  3. ADVIL CHILDRENS [Concomitant]
     Indication: PYREXIA
     Dosage: UNK, UNKNOWN
  4. FLINTSTONES MULTIVITAMIN [Concomitant]
     Indication: PRODUCT USED FOR UNKNOWN INDICATION
     Dosage: UNK, UNKNOWN

REACTIONS (4)
  - Urine abnormality [Recovered/Resolved]
  - Lethargy [Recovered/Resolved]
  - Underdose [Unknown]
  - Off label use [Unknown]
